FAERS Safety Report 7144851-1 (Version None)
Quarter: 2010Q4

REPORT INFORMATION
  Report Type: 
  Country: None (occurrence: None)
  Receive Date: 20101208
  Receipt Date: 20101124
  Transmission Date: 20110411
  Serious: Yes (Hospitalization)
  Sender: FDA-Public Use
  Company Number: IT-CELGENEUS-083-21880-10092543

PATIENT
  Sex: Male

DRUGS (6)
  1. REVLIMID [Suspect]
     Indication: MULTIPLE MYELOMA
     Route: 048
     Dates: start: 20100902, end: 20101111
  2. MELPHALAN HYDROCHLORIDE [Suspect]
     Indication: MULTIPLE MYELOMA
     Route: 048
     Dates: start: 20100902, end: 20101107
  3. PREDNISONE [Suspect]
     Indication: MULTIPLE MYELOMA
     Route: 048
     Dates: start: 20100902, end: 20101107
  4. OMEPRAZOLE [Concomitant]
     Route: 065
     Dates: start: 20100902
  5. ALLOPURINOL [Concomitant]
     Route: 065
     Dates: start: 20100902
  6. ENALAPRIL MALEATE [Concomitant]
     Route: 065
     Dates: start: 20100902

REACTIONS (4)
  - BRONCHOPULMONARY DISEASE [None]
  - HYPERPYREXIA [None]
  - LUNG DISORDER [None]
  - NEUTROPENIA [None]
